FAERS Safety Report 25192052 (Version 1)
Quarter: 2025Q2

REPORT INFORMATION
  Report Type: Spontaneous
  Country: GB (occurrence: GB)
  Receive Date: 20250414
  Receipt Date: 20250414
  Transmission Date: 20250716
  Serious: Yes (Other)
  Sender: DEXCEL
  Company Number: None

PATIENT
  Age: 68 Year
  Sex: Female
  Weight: 64 kg

DRUGS (6)
  1. OMEPRAZOLE [Suspect]
     Active Substance: OMEPRAZOLE
     Indication: Ill-defined disorder
     Dates: start: 20250304
  2. DIAZEPAMDIAZEPAM (Specific Substance SUB4792) [Concomitant]
     Indication: Ill-defined disorder
     Dates: start: 20250227, end: 20250313
  3. DOXAZOSINDOXAZOSIN (Specific Substance SUB5103) [Concomitant]
     Indication: Ill-defined disorder
     Dates: start: 20250328
  4. LISINOPRILLISINOPRIL (Specific Substance SUB7668) [Concomitant]
     Indication: Ill-defined disorder
     Dates: start: 20230731
  5. ATORVASTATINATORVASTATIN (Specific Substance SUB7358) [Concomitant]
     Indication: Ill-defined disorder
     Dates: start: 20240613
  6. FAMOTIDINEFAMOTIDINE (Specific Substance SUB5582) [Concomitant]
     Indication: Ill-defined disorder
     Dates: start: 20241031, end: 20250304

REACTIONS (1)
  - Acute kidney injury [Recovering/Resolving]
